FAERS Safety Report 21407759 (Version 2)
Quarter: 2022Q4

REPORT INFORMATION
  Report Type: Other
  Country: GB (occurrence: None)
  Receive Date: 20221004
  Receipt Date: 20221007
  Transmission Date: 20230112
  Serious: Yes (Death)
  Sender: FDA-Public Use
  Company Number: GB-ROCHE-3176392

PATIENT
  Sex: Female

DRUGS (1)
  1. ESBRIET [Suspect]
     Active Substance: PIRFENIDONE
     Indication: Product used for unknown indication
     Dosage: 3TDS
     Route: 065
     Dates: start: 202203

REACTIONS (2)
  - Death [Fatal]
  - Drug ineffective [Unknown]
